FAERS Safety Report 9164857 (Version 1)
Quarter: 2013Q1

REPORT INFORMATION
  Report Type: Spontaneous
  Country: FR (occurrence: None)
  Receive Date: 20130222
  Receipt Date: 20130222
  Transmission Date: 20140127
  Serious: Yes (Hospitalization)
  Sender: FDA-Public Use
  Company Number: FR-1196665

PATIENT
  Age: 91 Year
  Sex: Male

DRUGS (2)
  1. AZOPT [Suspect]
     Dates: start: 20130113
  2. XALATAN [Concomitant]

REACTIONS (2)
  - Dyspnoea [None]
  - Red blood cell count decreased [None]
